FAERS Safety Report 15431509 (Version 1)
Quarter: 2018Q3

REPORT INFORMATION
  Report Type: Spontaneous
  Country: CA (occurrence: US)
  Receive Date: 20180926
  Receipt Date: 20180926
  Transmission Date: 20181010
  Serious: No
  Sender: FDA-Public Use
  Company Number: CA-PFIZER INC-2018382616

PATIENT
  Age: 70 Year
  Sex: Female

DRUGS (3)
  1. EFFEXOR XR [Suspect]
     Active Substance: VENLAFAXINE HYDROCHLORIDE
     Indication: PAIN
     Dosage: 75 MG, 1X/DAY
  2. EFFEXOR XR [Suspect]
     Active Substance: VENLAFAXINE HYDROCHLORIDE
     Indication: ANTIDEPRESSANT THERAPY
     Dosage: 150 MG, DAILY
  3. EFFEXOR XR [Suspect]
     Active Substance: VENLAFAXINE HYDROCHLORIDE
     Dosage: 37.5 MG, 1X/DAY

REACTIONS (9)
  - Intentional product misuse [Unknown]
  - Malaise [Unknown]
  - Chills [Unknown]
  - Nausea [Unknown]
  - Feeling cold [Unknown]
  - Withdrawal syndrome [Unknown]
  - Decreased appetite [Unknown]
  - Hyperhidrosis [Unknown]
  - Dizziness [Unknown]
